FAERS Safety Report 18049939 (Version 6)
Quarter: 2020Q3

REPORT INFORMATION
  Report Type: Report from Study
  Country: IT (occurrence: IT)
  Receive Date: 20200721
  Receipt Date: 20200831
  Transmission Date: 20201105
  Serious: Yes (Death, Hospitalization)
  Sender: FDA-Public Use
  Company Number: IT-DSJP-DSU-2020-120292

PATIENT
  Age: 42 Year
  Sex: Female
  Weight: 53 kg

DRUGS (53)
  1. DELORAZEPAM [Concomitant]
     Active Substance: DELORAZEPAM
     Indication: INSOMNIA
     Dosage: 10 DROP, QD
     Route: 048
     Dates: start: 20200629, end: 20200629
  2. KETOROLAC [Concomitant]
     Active Substance: KETOROLAC TROMETHAMINE
     Dosage: 30 MG, BID
     Route: 042
     Dates: start: 20200626, end: 20200626
  3. MORPHINE HYDROCHLORIDE [Concomitant]
     Active Substance: MORPHINE HYDROCHLORIDE
     Dosage: 20 MG, QD
     Route: 042
     Dates: start: 20200701, end: 20200701
  4. TARGIN [Concomitant]
     Active Substance: NALOXONE HYDROCHLORIDE\OXYCODONE HYDROCHLORIDE
     Indication: LYMPHOEDEMA
     Dosage: 10+5 MG, QD
     Route: 048
     Dates: start: 20200623, end: 20200624
  5. DEXAMETHASONE. [Concomitant]
     Active Substance: DEXAMETHASONE
     Indication: PERICARDIAL EFFUSION
     Dosage: 4 MG, BID
     Route: 042
     Dates: start: 20200704, end: 20200707
  6. DEXAMETHASONE. [Concomitant]
     Active Substance: DEXAMETHASONE
     Dosage: 8 MG, SINGLE
     Route: 042
     Dates: start: 20200703, end: 20200703
  7. KETOROLAC [Concomitant]
     Active Substance: KETOROLAC TROMETHAMINE
     Dosage: 30 MG, QD
     Route: 042
     Dates: start: 20200630, end: 20200701
  8. MORPHINE HYDROCHLORIDE [Concomitant]
     Active Substance: MORPHINE HYDROCHLORIDE
     Dosage: 30 MG, SINGLE
     Route: 042
     Dates: start: 20200624, end: 20200624
  9. MORPHINE SULFATE. [Concomitant]
     Active Substance: MORPHINE SULFATE
     Dosage: 30 MG, BID
     Route: 048
     Dates: start: 20200626, end: 20200627
  10. CEFTRIAXONE. [Concomitant]
     Active Substance: CEFTRIAXONE
     Indication: LYMPHANGITIS
     Dosage: 2000 MG, QD
     Route: 042
     Dates: start: 20200623, end: 20200630
  11. IBUPROFEN. [Concomitant]
     Active Substance: IBUPROFEN
     Dosage: 600 MG, TID
     Route: 048
     Dates: start: 20200627, end: 20200705
  12. MORPHINE HYDROCHLORIDE [Concomitant]
     Active Substance: MORPHINE HYDROCHLORIDE
     Dosage: 20 MG, QD
     Route: 042
     Dates: start: 20200629, end: 20200629
  13. MORPHINE SULFATE. [Concomitant]
     Active Substance: MORPHINE SULFATE
     Dosage: 15 MG, BID
     Route: 048
     Dates: start: 20200624, end: 20200625
  14. PARACETAMOL AND CODEINE PHOSPHATE (I) [Concomitant]
     Active Substance: ACETAMINOPHEN\CODEINE PHOSPHATE
     Indication: LYMPHOEDEMA
     Dosage: 500+30, MG, PRN
     Route: 048
     Dates: start: 20200612, end: 20200622
  15. TRASTUZUMAB DERUXTECAN. [Suspect]
     Active Substance: TRASTUZUMAB DERUXTECAN
     Indication: HER2 POSITIVE BREAST CANCER
     Dosage: 5.4 MG/KG, ONCE EVERY 3 WK
     Route: 042
     Dates: start: 20200703, end: 20200703
  16. KETOROLAC [Concomitant]
     Active Substance: KETOROLAC TROMETHAMINE
     Indication: LYMPHOEDEMA
     Dosage: 30 MG, QD
     Route: 042
     Dates: start: 20200625, end: 20200625
  17. METOCLOPRAMIDE. [Concomitant]
     Active Substance: METOCLOPRAMIDE
     Indication: VOMITING
     Dosage: 10 MG, QD
     Route: 042
     Dates: start: 20200705, end: 20200705
  18. METOCLOPRAMIDE. [Concomitant]
     Active Substance: METOCLOPRAMIDE
     Dosage: 10 MG, BID
     Route: 042
     Dates: start: 20200706, end: 20200706
  19. MORPHINE SULFATE. [Concomitant]
     Active Substance: MORPHINE SULFATE
     Dosage: 120 MG, BID
     Route: 048
     Dates: start: 20200701, end: 20200705
  20. MORPHINE SULFATE. [Concomitant]
     Active Substance: MORPHINE SULFATE
     Dosage: 20 MG, BID
     Route: 048
     Dates: start: 20200629, end: 20200629
  21. MORPHINE SULFATE. [Concomitant]
     Active Substance: MORPHINE SULFATE
     Dosage: 60 MG, BID
     Route: 048
     Dates: start: 20200627, end: 20200630
  22. DIAZEPAM. [Concomitant]
     Active Substance: DIAZEPAM
     Indication: INSOMNIA
     Dosage: 10 MG, QD
     Route: 042
     Dates: start: 20200628, end: 20200628
  23. ELECTROLYTE                        /00909901/ [Concomitant]
     Indication: NAUSEA
     Dosage: 1500 ML, QD
     Route: 042
     Dates: start: 20200706, end: 20200706
  24. FENTANYL. [Concomitant]
     Active Substance: FENTANYL
     Indication: LYMPHOEDEMA
     Dosage: 1 PATCH, SINGLE
     Route: 062
     Dates: start: 20200706, end: 20200708
  25. GLUCOSE [Concomitant]
     Active Substance: DEXTROSE
     Indication: NAUSEA
     Dosage: 500 ML, QD
     Route: 042
     Dates: start: 20200706, end: 20200707
  26. IBUPROFEN. [Concomitant]
     Active Substance: IBUPROFEN
     Indication: LYMPHOEDEMA
     Dosage: 600 MG, QD
     Route: 048
     Dates: start: 20200626, end: 20200626
  27. MORPHINE HYDROCHLORIDE [Concomitant]
     Active Substance: MORPHINE HYDROCHLORIDE
     Dosage: 20 MG, BID
     Route: 042
     Dates: start: 20200628, end: 20200628
  28. MORPHINE SULFATE. [Concomitant]
     Active Substance: MORPHINE SULFATE
     Dosage: 30 MG, BID
     Route: 048
     Dates: start: 20200625, end: 20200625
  29. PANTOPRAZOLE [Concomitant]
     Active Substance: PANTOPRAZOLE
     Indication: PROPHYLAXIS
     Dosage: 40 MG, QD
     Route: 048
     Dates: start: 20200627, end: 20200706
  30. PARACETAMOL [Concomitant]
     Active Substance: ACETAMINOPHEN
     Indication: LYMPHOEDEMA
     Dosage: 1000 MG, QD
     Route: 042
     Dates: start: 20200623, end: 20200625
  31. COLCHICINE. [Concomitant]
     Active Substance: COLCHICINE
     Indication: PERICARDIAL EFFUSION
     Dosage: 0.5 MG, BID
     Route: 048
     Dates: start: 20200623, end: 20200703
  32. DEXAMETHASONE. [Concomitant]
     Active Substance: DEXAMETHASONE
     Dosage: 10 MG, QD
     Route: 042
     Dates: start: 20200628, end: 20200628
  33. MACROGOL [Concomitant]
     Active Substance: POLYETHYLENE GLYCOLS
     Indication: CONSTIPATION
     Dosage: 2 PACKET QD
     Route: 048
     Dates: start: 20200703, end: 20200703
  34. MORPHINE HYDROCHLORIDE [Concomitant]
     Active Substance: MORPHINE HYDROCHLORIDE
     Dosage: UNK
  35. MORPHINE SULFATE. [Concomitant]
     Active Substance: MORPHINE SULFATE
     Indication: LYMPHOEDEMA
     Dosage: 120 MG, QD
     Route: 048
     Dates: start: 20200706, end: 20200706
  36. MORPHINE SULFATE. [Concomitant]
     Active Substance: MORPHINE SULFATE
     Dosage: 20 MG, BID
     Route: 048
     Dates: start: 20200630, end: 20200630
  37. MORPHINE SULFATE. [Concomitant]
     Active Substance: MORPHINE SULFATE
     Dosage: 60 MG, QD
     Route: 048
     Dates: start: 20200701, end: 20200701
  38. ONDANSETRON [Concomitant]
     Active Substance: ONDANSETRON
     Indication: PREMEDICATION
     Dosage: 4 MG, QD
     Route: 042
     Dates: start: 20200703, end: 20200703
  39. ONDANSETRON [Concomitant]
     Active Substance: ONDANSETRON
     Dosage: 4 MG, BID
     Route: 042
     Dates: start: 20200704, end: 20200704
  40. ONDANSETRON [Concomitant]
     Active Substance: ONDANSETRON
     Dosage: 8 MG, SINGLE
     Route: 042
     Dates: start: 20200703, end: 20200703
  41. PARACETAMOL [Concomitant]
     Active Substance: ACETAMINOPHEN
     Dosage: 1000 MG, QD
     Route: 042
     Dates: start: 20200627, end: 20200627
  42. PREDNISONE. [Concomitant]
     Active Substance: PREDNISONE
     Dosage: 25 MG, QD
     Route: 048
     Dates: start: 20200624, end: 20200626
  43. DEXAMETHASONE. [Concomitant]
     Active Substance: DEXAMETHASONE
     Indication: PREMEDICATION
     Dosage: 4 MG, BID
     Route: 042
     Dates: start: 20200627, end: 20200702
  44. MACROGOL [Concomitant]
     Active Substance: POLYETHYLENE GLYCOLS
     Dosage: 2 PACKET, BID
     Route: 048
     Dates: start: 20200704, end: 20200705
  45. METOCLOPRAMIDE. [Concomitant]
     Active Substance: METOCLOPRAMIDE
     Indication: NAUSEA
     Dosage: 10 MG, QD
     Route: 042
     Dates: start: 20200702, end: 20200702
  46. MORPHINE HYDROCHLORIDE [Concomitant]
     Active Substance: MORPHINE HYDROCHLORIDE
     Indication: LYMPHOEDEMA
     Dosage: 10 MG, QD
     Route: 042
     Dates: start: 20200626, end: 20200626
  47. MORPHINE HYDROCHLORIDE [Concomitant]
     Active Substance: MORPHINE HYDROCHLORIDE
     Dosage: 20 MG, TID
     Route: 042
     Dates: start: 20200630, end: 20200630
  48. MORPHINE SULFATE. [Concomitant]
     Active Substance: MORPHINE SULFATE
     Dosage: 15 MG, QD
     Route: 048
     Dates: start: 20200626, end: 20200626
  49. MORPHINE SULFATE. [Concomitant]
     Active Substance: MORPHINE SULFATE
     Dosage: 30 MG, BID
     Route: 048
     Dates: start: 20200626, end: 20200626
  50. ONDANSETRON [Concomitant]
     Active Substance: ONDANSETRON
     Indication: NAUSEA
     Dosage: 4 MG EVERY OTHER DAY
     Route: 042
     Dates: start: 20200705, end: 20200707
  51. KETOROLAC [Concomitant]
     Active Substance: KETOROLAC TROMETHAMINE
     Dosage: 30 MG, QD
     Route: 042
     Dates: start: 20200627, end: 20200628
  52. MORPHINE SULFATE. [Concomitant]
     Active Substance: MORPHINE SULFATE
     Dosage: 20 MG, BID
     Route: 048
     Dates: start: 20200701, end: 20200701
  53. PREDNISONE. [Concomitant]
     Active Substance: PREDNISONE
     Indication: PERICARDIAL EFFUSION
     Dosage: 12.5 MG, QD
     Route: 048
     Dates: start: 20200623, end: 20200625

REACTIONS (1)
  - Sepsis [Fatal]

NARRATIVE: CASE EVENT DATE: 20200707
